FAERS Safety Report 21918932 (Version 3)
Quarter: 2024Q3

REPORT INFORMATION
  Report Type: Report from Study
  Country: US (occurrence: US)
  Receive Date: 20230127
  Receipt Date: 20240824
  Transmission Date: 20241016
  Serious: Yes (Hospitalization, Other)
  Sender: ABBVIE
  Company Number: US-ABBVIE-4282788

PATIENT
  Sex: Female

DRUGS (2)
  1. RINVOQ [Suspect]
     Active Substance: UPADACITINIB
     Indication: Dermatitis atopic
     Route: 048
     Dates: start: 20221019
  2. RINVOQ [Suspect]
     Active Substance: UPADACITINIB
     Indication: Dermatitis atopic
     Route: 048

REACTIONS (11)
  - Seizure [Recovered/Resolved]
  - Contusion [Unknown]
  - Illness [Recovered/Resolved]
  - Electrolyte depletion [Recovered/Resolved]
  - Increased tendency to bruise [Unknown]
  - Cataract [Recovered/Resolved]
  - Vomiting [Recovered/Resolved]
  - Limb injury [Unknown]
  - Memory impairment [Recovered/Resolved]
  - Knee arthroplasty [Unknown]
  - Pruritus [Unknown]

NARRATIVE: CASE EVENT DATE: 20230101
